FAERS Safety Report 7194467-6 (Version None)
Quarter: 2010Q4

REPORT INFORMATION
  Report Type: 
  Country: None (occurrence: None)
  Receive Date: 20101223
  Receipt Date: 20101216
  Transmission Date: 20110411
  Serious: Yes (Other)
  Sender: FDA-Public Use
  Company Number: JP-ASTRAZENECA-2010SE59687

PATIENT
  Age: 31 Year
  Sex: Female

DRUGS (1)
  1. XYLOCAINE [Suspect]
     Indication: LOCAL ANAESTHESIA
     Dosage: DOSE UNKNOWN
     Route: 065

REACTIONS (4)
  - BLOOD PRESSURE DECREASED [None]
  - HEART RATE DECREASED [None]
  - NAUSEA [None]
  - SHOCK [None]
